FAERS Safety Report 14154350 (Version 1)
Quarter: 2017Q4

REPORT INFORMATION
  Report Type: Spontaneous
  Country: FR (occurrence: FR)
  Receive Date: 20171102
  Receipt Date: 20171102
  Transmission Date: 20180321
  Serious: Yes (Hospitalization, Other)
  Sender: FDA-Public Use
  Company Number: FR-ELI_LILLY_AND_COMPANY-FR201710009813

PATIENT
  Age: 59 Year
  Sex: Male

DRUGS (15)
  1. SPECIAFOLDINE [Concomitant]
     Active Substance: FOLIC ACID
  2. CARBOPLATINE [Concomitant]
     Active Substance: CARBOPLATIN
  3. SERETIDE [Concomitant]
     Active Substance: FLUTICASONE PROPIONATE\SALMETEROL XINAFOATE
  4. MOPRAL                             /00661201/ [Concomitant]
     Active Substance: OMEPRAZOLE SODIUM
  5. CHOLURSO [Concomitant]
     Active Substance: URSODIOL
  6. SPIRIVA [Concomitant]
     Active Substance: TIOTROPIUM BROMIDE MONOHYDRATE
  7. LOXEN                              /00639802/ [Concomitant]
     Active Substance: NICARDIPINE HYDROCHLORIDE
  8. VERSATIS [Concomitant]
     Active Substance: LIDOCAINE
  9. XOLAIR [Concomitant]
     Active Substance: OMALIZUMAB
  10. ATROVENT [Concomitant]
     Active Substance: IPRATROPIUM BROMIDE
  11. ALIMTA [Suspect]
     Active Substance: PEMETREXED DISODIUM
     Indication: LUNG ADENOCARCINOMA
     Dosage: UNK UNK, CYCLICAL
     Route: 042
     Dates: start: 201612, end: 201709
  12. CORTANCYL [Concomitant]
     Active Substance: PREDNISONE
  13. DOLIPRANE [Concomitant]
     Active Substance: ACETAMINOPHEN
  14. TERBUTALINE [Concomitant]
     Active Substance: TERBUTALINE
  15. VITAMIN B12 [Concomitant]
     Active Substance: CYANOCOBALAMIN

REACTIONS (7)
  - Neuropathy peripheral [Not Recovered/Not Resolved]
  - C-reactive protein increased [Not Recovered/Not Resolved]
  - Weight decreased [Unknown]
  - Chills [Unknown]
  - Dyspnoea [Not Recovered/Not Resolved]
  - Decreased appetite [Unknown]
  - Osteitis condensans [Unknown]

NARRATIVE: CASE EVENT DATE: 201709
